FAERS Safety Report 12545642 (Version 3)
Quarter: 2016Q3

REPORT INFORMATION
  Report Type: Spontaneous
  Country: DE (occurrence: DE)
  Receive Date: 20160711
  Receipt Date: 20160721
  Transmission Date: 20161109
  Serious: Yes (Death, Other)
  Sender: FDA-Public Use
  Company Number: DE-TEVA-674884GER

PATIENT
  Age: 63 Year
  Sex: Female

DRUGS (6)
  1. DEXAMETHASONE. [Suspect]
     Active Substance: DEXAMETHASONE
     Dosage: 16 MILLIGRAM DAILY; FOUR MILLIGRAM FOUR TIMES DAILY UP TO ONSET
  2. CISPLATIN. [Suspect]
     Active Substance: CISPLATIN
     Indication: METASTASES TO CENTRAL NERVOUS SYSTEM
     Dosage: KOF; 100%
  3. ETOPOSIDE. [Suspect]
     Active Substance: ETOPOSIDE
     Indication: METASTASES TO CENTRAL NERVOUS SYSTEM
     Dosage: KOF; 100%
  4. DEXAMETHASONE. [Suspect]
     Active Substance: DEXAMETHASONE
     Dosage: 24 MILLIGRAM DAILY; FROM ONSET TO DEATH EIGHT MILLIGRAM THREE TIMES DAILY
  5. MANNITOL. [Suspect]
     Active Substance: MANNITOL
     Dosage: 20 % DAILY FROM ONSET TO DEATH
  6. MORPHINE [Concomitant]
     Active Substance: MORPHINE

REACTIONS (5)
  - Disorientation [Fatal]
  - Cytomegalovirus infection [Fatal]
  - Coma [Fatal]
  - Thrombocytopenia [Unknown]
  - Drug ineffective [Unknown]

NARRATIVE: CASE EVENT DATE: 20140925
